FAERS Safety Report 23565620 (Version 1)
Quarter: 2024Q1

REPORT INFORMATION
  Report Type: Spontaneous
  Country: CN (occurrence: CN)
  Receive Date: 20240226
  Receipt Date: 20240226
  Transmission Date: 20240410
  Serious: Yes (Hospitalization, Other)
  Sender: FDA-Public Use
  Company Number: CN-BAYER-2024A029435

PATIENT
  Age: 37 Year
  Sex: Male
  Weight: 65 kg

DRUGS (1)
  1. ULTRAVIST [Suspect]
     Active Substance: IOPROMIDE
     Indication: Computerised tomogram kidney
     Dosage: 75 ML, ONCE
     Route: 042
     Dates: start: 20240221, end: 20240221

REACTIONS (4)
  - Rash pruritic [Recovered/Resolved]
  - Skin warm [Recovered/Resolved]
  - Erythema [None]
  - Respiratory rate increased [None]

NARRATIVE: CASE EVENT DATE: 20240221
